FAERS Safety Report 7214891-2 (Version None)
Quarter: 2011Q1

REPORT INFORMATION
  Report Type: 
  Country: None (occurrence: None)
  Receive Date: 20110107
  Receipt Date: 20100426
  Transmission Date: 20110831
  Serious: No
  Sender: FDA-Public Use
  Company Number: A0856724A

PATIENT
  Age: 57 Year
  Sex: Female

DRUGS (7)
  1. SLOW MAGNESIUM [Concomitant]
  2. LOVAZA [Suspect]
     Dosage: 4G PER DAY
     Route: 048
     Dates: start: 20100422
  3. POTASSIUM CHLORIDE [Concomitant]
  4. TRIAMTERENE AND HYDROCHLOROTHIAZIDE [Concomitant]
  5. METOPROLOL SUCCINATE [Concomitant]
  6. ONE-A-DAY VITAMIN [Concomitant]
  7. OMEPRAZOLE [Concomitant]

REACTIONS (3)
  - GASTROINTESTINAL PAIN [None]
  - MUSCLE SPASMS [None]
  - ABDOMINAL PAIN LOWER [None]
